FAERS Safety Report 9360796 (Version 1)
Quarter: 2013Q2

REPORT INFORMATION
  Report Type: Spontaneous
  Country: US (occurrence: US)
  Receive Date: 20130621
  Receipt Date: 20130621
  Transmission Date: 20140414
  Serious: Yes (Hospitalization)
  Sender: FDA-Public Use
  Company Number: US-ELI_LILLY_AND_COMPANY-US201306003702

PATIENT
  Sex: Male

DRUGS (7)
  1. FORTEO [Suspect]
     Indication: OSTEOPOROSIS
     Dosage: 20 UG, QD
     Dates: start: 201303
  2. VITAMIN D [Concomitant]
     Dosage: 50000 U, WEEKLY (1/W)
  3. AMBIEN [Concomitant]
     Dosage: UNK, QD
  4. XANAX [Concomitant]
     Dosage: 0.5 MG, QD
  5. ZOLOFT [Concomitant]
     Dosage: 12.5 MG, QD
  6. KELP [Concomitant]
     Dosage: UNK
  7. CIALIS [Concomitant]
     Dosage: UNK
     Dates: start: 201302, end: 201304

REACTIONS (3)
  - Hernia [Unknown]
  - Hair colour changes [Unknown]
  - Inappropriate schedule of drug administration [Recovered/Resolved]
